FAERS Safety Report 8504975-0 (Version None)
Quarter: 2012Q3

REPORT INFORMATION
  Report Type: 
  Country: None (occurrence: None)
  Receive Date: 20120712
  Receipt Date: 20120703
  Transmission Date: 20120928
  Serious: Yes (Hospitalization)
  Sender: FDA-Public Use
  Company Number: JP-009507513-1207JPN000063

PATIENT

DRUGS (2)
  1. AROGLYCEM [Suspect]
     Dosage: 125 MG, UNK
     Route: 048
     Dates: start: 20111205, end: 20111212
  2. AROGLYCEM [Suspect]
     Dosage: 75 MG, UNK
     Route: 048
     Dates: start: 20111123, end: 20111204

REACTIONS (2)
  - ANAEMIA [None]
  - OEDEMA [None]
